FAERS Safety Report 23280739 (Version 1)
Quarter: 2023Q4

REPORT INFORMATION
  Report Type: Spontaneous
  Country: DE (occurrence: DE)
  Receive Date: 20231211
  Receipt Date: 20231211
  Transmission Date: 20240109
  Serious: Yes (Hospitalization)
  Sender: FDA-Public Use
  Company Number: DE-JNJFOC-20230818149

PATIENT
  Age: 9 Decade
  Sex: Female

DRUGS (4)
  1. DEXAMETHASONE [Suspect]
     Active Substance: DEXAMETHASONE
     Indication: Plasma cell myeloma
     Dosage: LAST DOSE BEFORE SAE WAS ADMINISTERED ON 05-JUL-2023NEXT THERAPY DATE: 04-AUG-2023
     Route: 048
     Dates: start: 20230605
  2. DARZALEX [Suspect]
     Active Substance: DARATUMUMAB
     Indication: Plasma cell myeloma
     Dosage: LAST DOSE BEFORE SAE WAS ADMINISTERED ON 05-JUL-2023NEXT THERAPY DATE: 04-AUG-2023
     Route: 058
     Dates: start: 20230605
  3. LENALIDOMIDE [Suspect]
     Active Substance: LENALIDOMIDE
     Dosage: LAST DOSE BEFORE SAE WAS ADMINISTERED ON 24-JUL-2023NEXT THERAPY DATE: 23-AUG-2023
     Route: 048
     Dates: start: 20221205
  4. LENALIDOMIDE [Suspect]
     Active Substance: LENALIDOMIDE
     Indication: Plasma cell myeloma
     Dosage: UNK
     Route: 048

REACTIONS (1)
  - Pneumonia [Recovering/Resolving]

NARRATIVE: CASE EVENT DATE: 20230724
